FAERS Safety Report 24613974 (Version 1)
Quarter: 2024Q4

REPORT INFORMATION
  Report Type: Spontaneous
  Country: CA (occurrence: CA)
  Receive Date: 20241113
  Receipt Date: 20241113
  Transmission Date: 20250114
  Serious: Yes (Other)
  Sender: TEVA
  Company Number: CA-TEVA-VS-3261959

PATIENT
  Age: 37 Year
  Sex: Female
  Weight: 96 kg

DRUGS (1)
  1. PACLITAXEL [Suspect]
     Active Substance: PACLITAXEL
     Indication: Product used for unknown indication
     Dosage: PACLITAXEL INJECTION USP, DOSE FORM: SOLUTION INTRAVENOUS
     Route: 065

REACTIONS (9)
  - Flushing [Not Recovered/Not Resolved]
  - Dysphonia [Not Recovered/Not Resolved]
  - Dizziness [Not Recovered/Not Resolved]
  - Pruritus [Not Recovered/Not Resolved]
  - Face oedema [Not Recovered/Not Resolved]
  - Throat tightness [Not Recovered/Not Resolved]
  - Chest discomfort [Not Recovered/Not Resolved]
  - Dyspnoea [Not Recovered/Not Resolved]
  - Nausea [Not Recovered/Not Resolved]
